FAERS Safety Report 25717200 (Version 1)
Quarter: 2025Q3

REPORT INFORMATION
  Report Type: Spontaneous
  Country: EU (occurrence: EU)
  Receive Date: 20250822
  Receipt Date: 20250822
  Transmission Date: 20251021
  Serious: Yes (Hospitalization, Other)
  Sender: PFIZER
  Company Number: EU-PFIZER INC-03H-013-0223521-00

PATIENT
  Age: 2 Year
  Sex: Female

DRUGS (9)
  1. METHYLPREDNISOLONE [Suspect]
     Active Substance: METHYLPREDNISOLONE
     Dosage: 150 MG/M2, DAILY (FROM DAY 2, REDUCED THEN STOPPED ON DAY 19)
  2. METHYLPREDNISOLONE [Suspect]
     Active Substance: METHYLPREDNISOLONE
  3. VECURONIUM BROMIDE [Suspect]
     Active Substance: VECURONIUM BROMIDE
  4. AZATHIOPRINE [Concomitant]
     Active Substance: AZATHIOPRINE
  5. CEFTAZIDIME [Concomitant]
     Active Substance: CEFTAZIDIME
  6. CYCLOSPORINE [Concomitant]
     Active Substance: CYCLOSPORINE
  7. DOPAMINE [Concomitant]
     Active Substance: DOPAMINE HYDROCHLORIDE
  8. VANCOMYCIN [Concomitant]
     Active Substance: VANCOMYCIN
  9. ORNIDAZOLE [Concomitant]
     Active Substance: ORNIDAZOLE

REACTIONS (1)
  - Intensive care unit acquired weakness [Recovered/Resolved]
